FAERS Safety Report 8309428 (Version 11)
Quarter: 2013Q4

REPORT INFORMATION
  Report Type: Spontaneous
  Country: US (occurrence: US)
  Receive Date: 20111223
  Receipt Date: 20131219
  Transmission Date: 20140711
  Serious: Yes (Hospitalization)
  Sender: FDA-Public Use
  Company Number: US-ASTRAZENECA-2011SE76007

PATIENT
  Age: 49 Year
  Sex: Female
  Weight: 82.6 kg

DRUGS (35)
  1. NEXIUM [Suspect]
     Indication: GASTROOESOPHAGEAL REFLUX DISEASE
     Route: 048
     Dates: start: 2002
  2. NEXIUM [Suspect]
     Indication: DYSPEPSIA
     Route: 048
     Dates: start: 2002
  3. NEXIUM [Suspect]
     Indication: GASTROOESOPHAGEAL REFLUX DISEASE
     Route: 048
     Dates: start: 20020305
  4. NEXIUM [Suspect]
     Indication: DYSPEPSIA
     Route: 048
     Dates: start: 20020305
  5. NEXIUM [Suspect]
     Indication: GASTROOESOPHAGEAL REFLUX DISEASE
     Route: 048
     Dates: start: 20020305, end: 20050204
  6. NEXIUM [Suspect]
     Indication: DYSPEPSIA
     Route: 048
     Dates: start: 20020305, end: 20050204
  7. NEXIUM [Suspect]
     Indication: GASTROOESOPHAGEAL REFLUX DISEASE
     Route: 048
     Dates: start: 20061024, end: 20090206
  8. NEXIUM [Suspect]
     Indication: DYSPEPSIA
     Route: 048
     Dates: start: 20061024, end: 20090206
  9. OMEPRAZOLE [Suspect]
     Indication: GASTROOESOPHAGEAL REFLUX DISEASE
     Route: 048
     Dates: start: 20090206, end: 20111114
  10. OMEPRAZOLE [Suspect]
     Indication: GASTROOESOPHAGEAL REFLUX DISEASE
     Route: 048
     Dates: start: 20090416, end: 201003
  11. OMEPRAZOLE [Suspect]
     Indication: GASTROOESOPHAGEAL REFLUX DISEASE
     Route: 048
     Dates: start: 20100107
  12. OMEPRAZOLE [Suspect]
     Indication: GASTROOESOPHAGEAL REFLUX DISEASE
     Route: 048
     Dates: start: 201003
  13. ESTRADIOL NORETHINDRONE [Concomitant]
     Dosage: 1.0 TO 0.5 MG ONE PO QD
     Route: 048
     Dates: start: 20100210
  14. CALTRATE [Concomitant]
     Dosage: 600 WITH D 600MG-200 U TABLET ONE PO BID
     Route: 048
     Dates: start: 20100210
  15. FISH OIL [Concomitant]
     Route: 048
     Dates: start: 20100210
  16. CELEXA [Concomitant]
     Route: 048
     Dates: start: 20100210
  17. FLEXERIL [Concomitant]
     Indication: PAIN
     Route: 048
     Dates: start: 20100210
  18. LORTAB [Concomitant]
     Indication: PAIN
     Dosage: 500 TO 10 MG, ONE PO Q8H PRN
     Route: 048
     Dates: start: 20091119, end: 201003
  19. LORTAB [Concomitant]
     Indication: PAIN
     Dosage: 10/500 MG ONE PO TID PRN
     Route: 048
     Dates: start: 201003
  20. CYMBALTA [Concomitant]
     Route: 048
     Dates: end: 201003
  21. MEDROL [Concomitant]
     Dates: start: 20100128, end: 201003
  22. ROBAXIN [Concomitant]
     Indication: MUSCLE SPASMS
     Dosage: 750 MG TABLET 1 PO TID PRN
     Route: 048
     Dates: start: 20090306, end: 201003
  23. ZOLOFT [Concomitant]
     Route: 048
     Dates: start: 20090416, end: 201003
  24. NAPROSYN SODIUM [Concomitant]
     Dates: start: 20020321
  25. NAPROSYN SODIUM [Concomitant]
     Dosage: 550 MG ONE PO BID PRN WITH FOOD 7 TO 10 D AS NEEDED
     Route: 048
     Dates: start: 20090804, end: 201003
  26. LEXAPRO [Concomitant]
     Route: 048
     Dates: start: 20091217, end: 201003
  27. BUTAL/APAP/CAFF PLUS [Concomitant]
     Dates: start: 20041117
  28. GUAIFENESIN LA [Concomitant]
     Dates: start: 20010306
  29. NAPROXEN [Concomitant]
     Indication: PAIN
     Dates: start: 2001
  30. NAPROXEN [Concomitant]
     Indication: FIBROMYALGIA
     Dates: start: 2001
  31. XANAX [Concomitant]
     Indication: INSOMNIA
  32. STEROID [Concomitant]
     Indication: BACK PAIN
     Dates: start: 20120301
  33. TUMS [Concomitant]
  34. ROLAIDS [Concomitant]
  35. PEPTO-BISMOL [Concomitant]
     Dosage: FOUR TIMES DAILY
     Route: 048
     Dates: start: 20100406

REACTIONS (12)
  - Hip fracture [Unknown]
  - Back disorder [Unknown]
  - Rib fracture [Unknown]
  - Bone disorder [Unknown]
  - Pain [Unknown]
  - Osteopenia [Unknown]
  - Stress fracture [Unknown]
  - Stress [Unknown]
  - Arthritis [Unknown]
  - Anxiety [Unknown]
  - Emotional distress [Unknown]
  - Depression [Unknown]
